FAERS Safety Report 9664291 (Version 2)
Quarter: 2013Q4

REPORT INFORMATION
  Report Type: Spontaneous
  Country: DE (occurrence: DE)
  Receive Date: 20131101
  Receipt Date: 20131120
  Transmission Date: 20140711
  Serious: No
  Sender: FDA-Public Use
  Company Number: DE-PFIZER INC-2013310394

PATIENT
  Age: 70 Year
  Sex: Female

DRUGS (2)
  1. RAMILICH [Suspect]
     Indication: HYPERTENSION
     Dosage: 5 MG, UNK
     Route: 048
  2. RAMILICH [Suspect]
     Dosage: 5 MG, SINGLE
     Route: 048
     Dates: start: 20131020, end: 20131020

REACTIONS (1)
  - Drug ineffective [Unknown]
